FAERS Safety Report 10976864 (Version 4)
Quarter: 2016Q1

REPORT INFORMATION
  Report Type: Spontaneous
  Country: CH (occurrence: CH)
  Receive Date: 20150401
  Receipt Date: 20160322
  Transmission Date: 20160525
  Serious: Yes (Other)
  Sender: FDA-Public Use
  Company Number: CH-PFIZER INC-2015108445

PATIENT
  Age: 63 Year
  Sex: Male

DRUGS (2)
  1. LYRICA [Suspect]
     Active Substance: PREGABALIN
     Indication: POLYNEUROPATHY
     Dosage: 25 MG, DAILY
  2. STILNOX [Concomitant]
     Active Substance: ZOLPIDEM TARTRATE

REACTIONS (7)
  - Renal failure [Unknown]
  - Vomiting [Unknown]
  - Hypersensitivity [Unknown]
  - Urticaria [Unknown]
  - Drug intolerance [Unknown]
  - Hepatic neoplasm [Unknown]
  - Dyspnoea [Unknown]
